FAERS Safety Report 13953437 (Version 1)
Quarter: 2017Q3

REPORT INFORMATION
  Report Type: Spontaneous
  Country: US (occurrence: US)
  Receive Date: 20170911
  Receipt Date: 20170911
  Transmission Date: 20171128
  Serious: No
  Sender: FDA-Public Use
  Company Number: US-TEVA-794682ACC

PATIENT
  Age: 10 Year
  Sex: Male

DRUGS (2)
  1. ATOMOXETINE. [Suspect]
     Active Substance: ATOMOXETINE HYDROCHLORIDE
     Dates: start: 2017
  2. ATOMOXETINE. [Suspect]
     Active Substance: ATOMOXETINE HYDROCHLORIDE
     Indication: PRODUCT USED FOR UNKNOWN INDICATION
     Route: 065
     Dates: start: 2017

REACTIONS (6)
  - Grimacing [Unknown]
  - Fatigue [Unknown]
  - Product substitution issue [Unknown]
  - Excessive eye blinking [Unknown]
  - Eye movement disorder [Unknown]
  - Tic [Unknown]

NARRATIVE: CASE EVENT DATE: 2017
